FAERS Safety Report 7312290-6 (Version None)
Quarter: 2011Q1

REPORT INFORMATION
  Report Type: 
  Country: None (occurrence: None)
  Receive Date: 20110224
  Receipt Date: 20110218
  Transmission Date: 20110831
  Serious: Yes (Other)
  Sender: FDA-Public Use
  Company Number: B0700688A

PATIENT
  Age: 47 Year
  Sex: Male
  Weight: 149 kg

DRUGS (3)
  1. BUPROPION HYDROCHLORIDE [Suspect]
     Indication: SMOKING CESSATION THERAPY
     Dosage: 300MG PER DAY
     Route: 048
     Dates: start: 20110125, end: 20110129
  2. OLMESARTAN MEDOXOMIL [Concomitant]
  3. SIMVASTATIN [Concomitant]

REACTIONS (4)
  - JAUNDICE [None]
  - OEDEMA [None]
  - LIVER FUNCTION TEST ABNORMAL [None]
  - RASH GENERALISED [None]
